FAERS Safety Report 12204143 (Version 5)
Quarter: 2016Q2

REPORT INFORMATION
  Report Type: Spontaneous
  Country: US (occurrence: US)
  Receive Date: 20160323
  Receipt Date: 20160628
  Transmission Date: 20160815
  Serious: No
  Sender: FDA-Public Use
  Company Number: US-PFIZER INC-2016169437

PATIENT
  Age: 76 Year
  Sex: Female
  Weight: 58.6 kg

DRUGS (4)
  1. XALATAN [Suspect]
     Active Substance: LATANOPROST
     Dosage: UNK
  2. XALATAN [Suspect]
     Active Substance: LATANOPROST
     Indication: GLAUCOMA
     Dosage: ONE DROP IN EACH EYE EVERY NIGHT
     Route: 047
  3. TRUSOPT [Concomitant]
     Active Substance: DORZOLAMIDE HYDROCHLORIDE
     Indication: GLAUCOMA
     Dosage: 2 DROPS BOTH EYES 1 T MORNING, 1 T NIGHTLY
     Route: 047
  4. SYNTHROID [Concomitant]
     Active Substance: LEVOTHYROXINE SODIUM
     Indication: AUTOIMMUNE THYROIDITIS
     Dosage: UNK, 1X/DAY

REACTIONS (4)
  - Body height decreased [Unknown]
  - Drug effect incomplete [Unknown]
  - Incorrect dose administered [Unknown]
  - Product dropper issue [Unknown]
